FAERS Safety Report 25204957 (Version 1)
Quarter: 2025Q2

REPORT INFORMATION
  Report Type: Report from Study
  Country: CA (occurrence: CA)
  Receive Date: 20250416
  Receipt Date: 20250416
  Transmission Date: 20250716
  Serious: Yes (Other)
  Sender: ABBVIE
  Company Number: CA-ABBVIE-6219820

PATIENT
  Age: 42 Year
  Sex: Female

DRUGS (1)
  1. SKYRIZI [Suspect]
     Active Substance: RISANKIZUMAB-RZAA
     Indication: Crohn^s disease
     Route: 058
     Dates: end: 2025

REACTIONS (5)
  - Drain placement [Unknown]
  - Medical device site pain [Unknown]
  - Medical device site haemorrhage [Unknown]
  - Medical device site discharge [Unknown]
  - Drain placement [Unknown]

NARRATIVE: CASE EVENT DATE: 20210101
